FAERS Safety Report 4523144-2 (Version None)
Quarter: 2004Q4

REPORT INFORMATION
  Report Type: 
  Country: None (occurrence: None)
  Receive Date: 20041208
  Receipt Date: 20041126
  Transmission Date: 20050328
  Serious: Yes (Life-Threatening, Hospitalization, Congenital Anomaly)
  Sender: FDA-Public Use
  Company Number: 8008198

PATIENT
  Sex: Female

DRUGS (5)
  1. KEPPRA [Suspect]
     Indication: EPILEPSY
     Dosage: 250 MG 2/D TRP
     Route: 064
     Dates: start: 20040201
  2. LAMOTRIGINE [Suspect]
     Indication: EPILEPSY
     Dosage: 100 MG 2/D TRP
     Route: 064
     Dates: start: 20040201
  3. FERROUS SULPHATE ANHYDROUS [Concomitant]
  4. FOLIC ACID [Concomitant]
  5. VALPROATE SODIUM [Concomitant]

REACTIONS (4)
  - CONGENITAL ANOMALY [None]
  - CONGENITAL ATRIAL SEPTAL DEFECT [None]
  - DRUG EXPOSURE DURING PREGNANCY [None]
  - NEONATAL RESPIRATORY DISTRESS SYNDROME [None]
